FAERS Safety Report 7305959-0 (Version None)
Quarter: 2011Q1

REPORT INFORMATION
  Report Type: 
  Country: None (occurrence: None)
  Receive Date: 20110222
  Receipt Date: 20110216
  Transmission Date: 20110831
  Serious: Yes (Death, Hospitalization)
  Sender: FDA-Public Use
  Company Number: IE-ABBOTT-10P-229-0657856-00

PATIENT
  Sex: Male

DRUGS (2)
  1. HUMIRA [Suspect]
     Indication: CROHN'S DISEASE
     Route: 058
     Dates: start: 20100422, end: 20100520
  2. MESALAZINE [Concomitant]
     Indication: CROHN'S DISEASE
     Route: 048
     Dates: start: 20100220, end: 20100601

REACTIONS (11)
  - INTESTINAL FISTULA [None]
  - MULTI-ORGAN FAILURE [None]
  - COAGULOPATHY [None]
  - CACHEXIA [None]
  - HISTIOCYTOSIS HAEMATOPHAGIC [None]
  - MALNUTRITION [None]
  - PSOAS ABSCESS [None]
  - SEPSIS [None]
  - ABDOMINAL MASS [None]
  - WEIGHT DECREASED [None]
  - THROMBOCYTOPENIA [None]
